FAERS Safety Report 9973595 (Version 1)
Quarter: 2014Q1

REPORT INFORMATION
  Report Type: Spontaneous
  Country: US (occurrence: US)
  Receive Date: 20140306
  Receipt Date: 20140306
  Transmission Date: 20141002
  Serious: Yes (Other)
  Sender: FDA-Public Use
  Company Number: US-AMGEN-USASP2014014657

PATIENT
  Age: 86 Year
  Sex: Female

DRUGS (1)
  1. PROLIA [Suspect]
     Indication: OSTEOPOROSIS POSTMENOPAUSAL
     Route: 065

REACTIONS (8)
  - Gastric ulcer haemorrhage [Unknown]
  - Limb crushing injury [Unknown]
  - Spinal compression fracture [Unknown]
  - Fall [Unknown]
  - Pain [Unknown]
  - Bone disorder [Unknown]
  - Dizziness [Unknown]
  - Walking aid user [Unknown]
